FAERS Safety Report 23858431 (Version 1)
Quarter: 2024Q2

REPORT INFORMATION
  Report Type: Spontaneous
  Country: US (occurrence: None)
  Receive Date: 20240514
  Receipt Date: 20240514
  Transmission Date: 20240716
  Serious: No
  Sender: FDA-Public Use
  Company Number: None

PATIENT
  Age: 9 Month
  Sex: Male
  Weight: 9 kg

DRUGS (2)
  1. DUPILUMAB [Suspect]
     Active Substance: DUPILUMAB
     Indication: Dermatitis atopic
     Dosage: 200 MG Q4W SUBCUTANEOUS ?
     Route: 058
     Dates: start: 20240514
  2. MMRV [Concomitant]
     Dates: start: 20240430, end: 20240430

REACTIONS (1)
  - Product use issue [None]

NARRATIVE: CASE EVENT DATE: 20240514
